FAERS Safety Report 16243143 (Version 9)
Quarter: 2021Q2

REPORT INFORMATION
  Report Type: Other
  Country: DE (occurrence: DE)
  Receive Date: 20190426
  Receipt Date: 20210528
  Transmission Date: 20210716
  Serious: Yes (Other)
  Sender: FDA-Public Use
  Company Number: DE-ROCHE-2297486

PATIENT
  Age: 44 Year
  Sex: Female
  Weight: 63 kg

DRUGS (13)
  1. OCREVUS [Suspect]
     Active Substance: OCRELIZUMAB
     Route: 042
     Dates: start: 20191029
  2. AERIUS [Concomitant]
     Dosage: SIDE EFFECT PROPHYLAXIS OF OCREVUS
     Route: 048
     Dates: start: 20190326, end: 20190326
  3. OCREVUS [Suspect]
     Active Substance: OCRELIZUMAB
     Indication: SECONDARY PROGRESSIVE MULTIPLE SCLEROSIS
     Route: 042
     Dates: start: 20190327
  4. PREDNISOLON [Concomitant]
     Active Substance: PREDNISOLONE
     Route: 042
     Dates: start: 20190327, end: 20190327
  5. PREDNISOLON [Concomitant]
     Active Substance: PREDNISOLONE
     Dosage: SIDE EFFECT PROPHYLAXIS OF OCREVUS
     Route: 042
     Dates: start: 20190410, end: 20190410
  6. CORTISONE [Suspect]
     Active Substance: CORTISONE
     Indication: PREMEDICATION
     Route: 065
  7. COMIRNATY [Suspect]
     Active Substance: TOZINAMERAN
     Indication: COVID-19 IMMUNISATION
     Dosage: FIRST VACCINATION
     Route: 065
     Dates: start: 20210420
  8. COMIRNATY [Suspect]
     Active Substance: TOZINAMERAN
     Dosage: SECOND VACCINATION
     Route: 065
     Dates: start: 20210511
  9. OCREVUS [Suspect]
     Active Substance: OCRELIZUMAB
     Route: 042
     Dates: start: 20190410
  10. OCREVUS [Suspect]
     Active Substance: OCRELIZUMAB
     Route: 042
     Dates: start: 20200422
  11. AERIUS [Concomitant]
     Route: 048
     Dates: start: 20190409, end: 20190411
  12. RANITIDIN [Concomitant]
     Active Substance: RANITIDINE HYDROCHLORIDE
     Dosage: SIDE EFFECT PROPHYLAXIS OF OCREVUS
     Route: 048
     Dates: start: 20190326, end: 20190326
  13. RANITIDIN [Concomitant]
     Active Substance: RANITIDINE HYDROCHLORIDE
     Route: 048
     Dates: start: 20190409, end: 20190411

REACTIONS (12)
  - Oral herpes [Recovered/Resolved]
  - Pain in extremity [Recovered/Resolved]
  - Nausea [Recovered/Resolved]
  - Diarrhoea [Recovered/Resolved]
  - Pain in extremity [Recovered/Resolved]
  - Insomnia [Recovered/Resolved]
  - Off label use [Unknown]
  - Pain in extremity [Recovered/Resolved]
  - Weight increased [Not Recovered/Not Resolved]
  - Increased appetite [Recovered/Resolved]
  - Sleep disorder [Recovered/Resolved]
  - Vomiting [Recovered/Resolved]

NARRATIVE: CASE EVENT DATE: 20190327
